FAERS Safety Report 9447533 (Version 2)
Quarter: 2013Q3

REPORT INFORMATION
  Report Type: Spontaneous
  Country: US (occurrence: US)
  Receive Date: 20130808
  Receipt Date: 20130909
  Transmission Date: 20140515
  Serious: No
  Sender: FDA-Public Use
  Company Number: US-PFIZER INC-2013226311

PATIENT
  Age: 74 Year
  Sex: Male
  Weight: 72.56 kg

DRUGS (2)
  1. VIAGRA [Suspect]
     Indication: ERECTILE DYSFUNCTION
     Dosage: UNK,AS NEEDED
  2. CARTEOLOL [Concomitant]
     Indication: GLAUCOMA
     Dosage: UNK

REACTIONS (2)
  - Heart rate increased [Unknown]
  - Blood cholesterol decreased [Unknown]
